FAERS Safety Report 11577677 (Version 1)
Quarter: 2015Q3

REPORT INFORMATION
  Report Type: Spontaneous
  Country: US (occurrence: US)
  Receive Date: 20150930
  Receipt Date: 20150930
  Transmission Date: 20151125
  Serious: No
  Sender: FDA-Public Use
  Company Number: US-BAYER-2015-427910

PATIENT
  Age: 74 Year
  Sex: Female

DRUGS (1)
  1. BETASERON [Suspect]
     Active Substance: INTERFERON BETA-1B
     Indication: MULTIPLE SCLEROSIS
     Dosage: 0.3 MG, QOD
     Dates: start: 20141020

REACTIONS (5)
  - Malaise [None]
  - Drug dose omission [None]
  - Dyskinesia [None]
  - Product use issue [None]
  - Drug dose omission [None]

NARRATIVE: CASE EVENT DATE: 201509
